FAERS Safety Report 5557054-9 (Version None)
Quarter: 2007Q4

REPORT INFORMATION
  Report Type: 
  Country: None (occurrence: None)
  Receive Date: 20071214
  Receipt Date: 20071211
  Transmission Date: 20080405
  Serious: Yes (Other)
  Sender: FDA-Public Use
  Company Number: GB-WYE-G00488807

PATIENT
  Sex: Male
  Weight: 7.5 kg

DRUGS (1)
  1. BENEFIX [Suspect]
     Indication: FACTOR IX DEFICIENCY
     Dosage: 500 IU EVERY 1 TOT
     Dates: start: 20071012, end: 20070101

REACTIONS (6)
  - ANAPHYLACTIC REACTION [None]
  - EYE OEDEMA [None]
  - FACTOR IX INHIBITION [None]
  - HYPERSENSITIVITY [None]
  - INJECTION SITE URTICARIA [None]
  - OEDEMA MOUTH [None]
